FAERS Safety Report 18467917 (Version 2)
Quarter: 2022Q3

REPORT INFORMATION
  Report Type: Spontaneous
  Country: CA (occurrence: CA)
  Receive Date: 20201105
  Receipt Date: 20220711
  Transmission Date: 20221026
  Serious: Yes (Death, Other)
  Sender: FDA-Public Use
  Company Number: CA-GLAXOSMITHKLINE-CA2020GSK219666

PATIENT

DRUGS (3)
  1. AVANDIA [Suspect]
     Active Substance: ROSIGLITAZONE MALEATE
     Indication: Diabetes mellitus
     Dosage: 4 MG, QD
     Route: 048
     Dates: start: 20060704, end: 20090928
  2. AVANDIA [Suspect]
     Active Substance: ROSIGLITAZONE MALEATE
     Dosage: 2 MG
     Route: 048
     Dates: start: 20060704
  3. AVANDIA [Suspect]
     Active Substance: ROSIGLITAZONE MALEATE
     Dosage: 8 MG
     Route: 048
     Dates: start: 20060704

REACTIONS (10)
  - Death [Fatal]
  - Myocardial infarction [Unknown]
  - Cardiac failure congestive [Unknown]
  - Myocardial ischaemia [Unknown]
  - Acute myocardial infarction [Unknown]
  - Cardiac disorder [Unknown]
  - Sinus bradycardia [Unknown]
  - Coronary artery disease [Unknown]
  - Left ventricular dysfunction [Unknown]
  - Coronary artery bypass [Unknown]
